FAERS Safety Report 18463151 (Version 1)
Quarter: 2020Q4

REPORT INFORMATION
  Report Type: Spontaneous
  Country: US (occurrence: US)
  Receive Date: 20201104
  Receipt Date: 20201104
  Transmission Date: 20210114
  Serious: Yes (Hospitalization)
  Sender: FDA-Public Use
  Company Number: US-PFIZER INC-2020426466

PATIENT
  Age: 82 Year
  Sex: Female

DRUGS (4)
  1. GABAPENTIN. [Suspect]
     Active Substance: GABAPENTIN
     Dosage: 800 MG (TAKING THE GABAPENTIN 800 MG DOSE, SO EVERY COUPLE DAYS)
  2. TOVIAZ [Suspect]
     Active Substance: FESOTERODINE FUMARATE
     Indication: BLADDER DISORDER
     Dosage: 8 MG, 1X/DAY (8MG TABLET BY MOUTH ONCE A DAY)
     Route: 048
  3. GABAPENTIN. [Suspect]
     Active Substance: GABAPENTIN
     Dosage: 800 MG, DAILY (GABAPENTIN 800MG A DAY)
  4. GABAPENTIN. [Suspect]
     Active Substance: GABAPENTIN
     Dosage: UNK (LOWER DOSE OF GABAPENTIN)

REACTIONS (9)
  - Urinary tract infection [Unknown]
  - Kidney infection [Unknown]
  - Pain [Unknown]
  - Amnesia [Unknown]
  - Dysstasia [Unknown]
  - Asthenia [Unknown]
  - Confusional state [Unknown]
  - Drug ineffective [Unknown]
  - Fall [Unknown]
